FAERS Safety Report 7793189-8 (Version None)
Quarter: 2011Q3

REPORT INFORMATION
  Report Type: 
  Country: None (occurrence: None)
  Receive Date: 20110930
  Receipt Date: 20110930
  Transmission Date: 20111222
  Serious: No
  Sender: FDA-Public Use
  Company Number: None

PATIENT
  Sex: Female
  Weight: 79.3795 kg

DRUGS (4)
  1. BACTROBAN [Suspect]
     Indication: BACTERIAL INFECTION
     Dates: start: 20110819
  2. BACTROBAN [Suspect]
     Indication: BACTERIAL INFECTION
     Dates: start: 20110820
  3. BACTROBAN [Suspect]
     Indication: BACTERIAL INFECTION
     Dates: start: 20110818
  4. BACTROBAN [Suspect]
     Indication: BACTERIAL INFECTION
     Dates: start: 20110821

REACTIONS (6)
  - BURNING SENSATION [None]
  - ERYTHEMA [None]
  - PAIN [None]
  - THERMAL BURN [None]
  - SKIN ULCER [None]
  - PRURITUS [None]
